FAERS Safety Report 8219758-9 (Version None)
Quarter: 2012Q1

REPORT INFORMATION
  Report Type: 
  Country: None (occurrence: None)
  Receive Date: 20120319
  Receipt Date: 20120316
  Transmission Date: 20120608
  Serious: No
  Sender: FDA-Public Use
  Company Number: US-PFIZER INC-2012070135

PATIENT
  Sex: Male
  Weight: 81.633 kg

DRUGS (2)
  1. ADVIL PM [Suspect]
     Indication: SLEEP DISORDER
  2. ADVIL PM [Suspect]
     Indication: PAIN
     Dosage: 200/38 MG, UNK
     Route: 048
     Dates: start: 20120315, end: 20120315

REACTIONS (4)
  - IRRITABILITY [None]
  - AGITATION [None]
  - PAIN [None]
  - BACK PAIN [None]
